FAERS Safety Report 7775553-6 (Version None)
Quarter: 2011Q3

REPORT INFORMATION
  Report Type: 
  Country: None (occurrence: None)
  Receive Date: 20110923
  Receipt Date: 20110914
  Transmission Date: 20111222
  Serious: Yes (Other)
  Sender: FDA-Public Use
  Company Number: US-JNJFOC-20110906766

PATIENT
  Sex: Male
  Weight: 56.7 kg

DRUGS (3)
  1. REMICADE [Suspect]
     Indication: CROHN'S DISEASE
     Route: 042
     Dates: start: 20110801
  2. IMURAN [Concomitant]
     Indication: CROHN'S DISEASE
     Route: 048
  3. ASACOL [Concomitant]
     Indication: CROHN'S DISEASE
     Dosage: SIX 400 MG TABLETS DAILY
     Route: 048

REACTIONS (1)
  - ANAL FISTULA [None]
